APPROVED DRUG PRODUCT: RESERPINE, HYDRALAZINE HYDROCHLORIDE AND HYDROCHLOROTHIAZIDE
Active Ingredient: HYDRALAZINE HYDROCHLORIDE; HYDROCHLOROTHIAZIDE; RESERPINE
Strength: 25MG;15MG;0.1MG
Dosage Form/Route: TABLET;ORAL
Application: A088376 | Product #001
Applicant: SOLVAY PHARMACEUTICALS
Approved: Oct 28, 1983 | RLD: No | RS: No | Type: DISCN